FAERS Safety Report 20719398 (Version 1)
Quarter: 2022Q2

REPORT INFORMATION
  Report Type: Spontaneous
  Country: US (occurrence: US)
  Receive Date: 20220418
  Receipt Date: 20220418
  Transmission Date: 20220721
  Serious: Yes (Life-Threatening, Hospitalization, Other)
  Sender: FDA-Public Use
  Company Number: US-AMGEN-USASP2022064360

PATIENT
  Age: 42 Year
  Sex: Male

DRUGS (3)
  1. EPOETIN ALFA [Suspect]
     Active Substance: ERYTHROPOIETIN
     Indication: Haemoglobin decreased
     Dosage: UNK
     Route: 065
  2. IRON [Concomitant]
     Active Substance: IRON
     Indication: Haemoglobin decreased
     Dosage: UNK
     Route: 048
  3. TACROLIMUS [Concomitant]
     Active Substance: TACROLIMUS
     Dosage: UNK

REACTIONS (3)
  - Pulmonary oedema [Recovered/Resolved]
  - Haemoglobin decreased [Unknown]
  - Red blood cell count decreased [Unknown]
